FAERS Safety Report 9528820 (Version 1)
Quarter: 2013Q2

REPORT INFORMATION
  Report Type: Spontaneous
  Country: US (occurrence: None)
  Receive Date: 20130401
  Receipt Date: 20130401
  Transmission Date: 20140414
  Serious: Yes (Hospitalization)
  Sender: FDA-Public Use
  Company Number: PHEH2012US023961

PATIENT
  Age: 74 Year
  Sex: Male

DRUGS (5)
  1. EXELON PATCH [Suspect]
  2. BISOPROLOL (BISOPROLOL) [Concomitant]
  3. FUMARATE (FUMARATE DISODIUM) [Concomitant]
  4. AMLODIPINE W/ ATORVASTATIN (AMLODIPINE, ATORVASTATIN) [Concomitant]
  5. HYDROCHLOROTHIAZIDE [Concomitant]

REACTIONS (1)
  - Fall [None]
